FAERS Safety Report 4675643-0 (Version None)
Quarter: 2005Q2

REPORT INFORMATION
  Report Type: 
  Country: None (occurrence: None)
  Receive Date: 20050527
  Receipt Date: 20050520
  Transmission Date: 20051028
  Serious: Yes (Death, Other)
  Sender: FDA-Public Use
  Company Number: PHBS2005AT07309

PATIENT
  Age: 9 Year
  Sex: Male

DRUGS (4)
  1. CYCLOSPORINE [Suspect]
     Indication: BONE MARROW TRANSPLANT
  2. MYCOPHENOLATE MOFETIL [Concomitant]
  3. PREDNISOLONE [Concomitant]
  4. BUDESONIDE [Concomitant]

REACTIONS (25)
  - ABSCESS DRAINAGE [None]
  - ASPERGILLOSIS [None]
  - C-REACTIVE PROTEIN INCREASED [None]
  - CHONDROPATHY [None]
  - CYTOMEGALOVIRUS INFECTION [None]
  - DRY EYE [None]
  - DRY MOUTH [None]
  - EPSTEIN-BARR VIRUS INFECTION [None]
  - FUNGUS SEROLOGY TEST POSITIVE [None]
  - FUSARIUM INFECTION [None]
  - GRAFT VERSUS HOST DISEASE [None]
  - GRANULOMA [None]
  - HUMAN HERPESVIRUS 6 INFECTION [None]
  - INTERSTITIAL LUNG DISEASE [None]
  - LEUKOCYTOSIS [None]
  - NASAL ABSCESS [None]
  - NASAL CAVITY MASS [None]
  - NASAL DRYNESS [None]
  - NEUTROPENIA [None]
  - NODULE [None]
  - PNEUMONIA CYTOMEGALOVIRAL [None]
  - PYREXIA [None]
  - RESPIRATORY DISORDER [None]
  - SHIFT TO THE LEFT [None]
  - SPLEEN DISORDER [None]
